FAERS Safety Report 9845994 (Version 1)
Quarter: 2014Q1

REPORT INFORMATION
  Report Type: Spontaneous
  Country: US (occurrence: US)
  Receive Date: 20140127
  Receipt Date: 20140127
  Transmission Date: 20141002
  Serious: Yes (Hospitalization, Other)
  Sender: FDA-Public Use
  Company Number: US-SA-2014SA009010

PATIENT
  Age: 67 Year
  Sex: Female
  Weight: 73.5 kg

DRUGS (2)
  1. HECTOROL [Suspect]
     Indication: HYPERPARATHYROIDISM
     Route: 042
  2. HECTOROL [Suspect]
     Indication: HYPERPARATHYROIDISM
     Route: 042

REACTIONS (2)
  - Unresponsive to stimuli [Unknown]
  - Pulse absent [Unknown]
